FAERS Safety Report 9209418 (Version 1)
Quarter: 2013Q1

REPORT INFORMATION
  Report Type: Spontaneous
  Country: US (occurrence: None)
  Receive Date: 20120820
  Receipt Date: 20120820
  Transmission Date: 20140127
  Serious: No
  Sender: FDA-Public Use
  Company Number: 1000031002

PATIENT
  Sex: Female

DRUGS (3)
  1. VIIBRYD [Suspect]
     Indication: DEPRESSION
     Route: 048
     Dates: start: 20120525
  2. METRONIDAZOLE (METRONIDAZOLE) [Suspect]
     Indication: VAGINAL INFECTION
     Dates: start: 20120517, end: 20120526
  3. METRONIDAZOLE (METRONIDAZOLE) [Suspect]
     Indication: BACTERIAL INFECTION
     Dates: start: 20120517, end: 20120526

REACTIONS (4)
  - Nausea [None]
  - Fatigue [None]
  - Dizziness [None]
  - Diarrhoea [None]
